FAERS Safety Report 24147804 (Version 1)
Quarter: 2024Q3

REPORT INFORMATION
  Report Type: Spontaneous
  Country: FR (occurrence: FR)
  Receive Date: 20240729
  Receipt Date: 20240729
  Transmission Date: 20241016
  Serious: Yes (Other)
  Sender: FRESENIUS KABI
  Company Number: None

PATIENT
  Age: 57 Year
  Sex: Male

DRUGS (22)
  1. ROPIVACAINE [Suspect]
     Active Substance: ROPIVACAINE
     Indication: Pain
     Dosage: UNKNOWN
     Route: 008
     Dates: start: 20240617, end: 20240620
  2. ROPIVACAINE [Suspect]
     Active Substance: ROPIVACAINE
     Dosage: UNKNOWN
     Route: 008
     Dates: start: 20240623, end: 20240625
  3. DIATRIZOATE MEGLUMINE\DIATRIZOATE SODIUM [Suspect]
     Active Substance: DIATRIZOATE MEGLUMINE\DIATRIZOATE SODIUM
     Indication: Scan
     Route: 048
     Dates: start: 20240621, end: 20240621
  4. ALFENTANIL HYDROCHLORIDE [Suspect]
     Active Substance: ALFENTANIL HYDROCHLORIDE
     Indication: Pain
     Dosage: 750 ?G IF NEEDED
     Route: 042
     Dates: start: 20240620, end: 20240702
  5. TRIMEBUTINE MALEATE [Suspect]
     Active Substance: TRIMEBUTINE MALEATE
     Indication: Abdominal pain
     Route: 042
     Dates: start: 20240617, end: 20240627
  6. ATENOLOL [Suspect]
     Active Substance: ATENOLOL
     Indication: Abdominal pain
     Route: 042
     Dates: start: 20240620, end: 20240622
  7. DULOXETINE HYDROCHLORIDE [Suspect]
     Active Substance: DULOXETINE HYDROCHLORIDE
     Indication: Neuralgia
     Route: 048
     Dates: start: 20240623, end: 20240626
  8. DULOXETINE HYDROCHLORIDE [Suspect]
     Active Substance: DULOXETINE HYDROCHLORIDE
     Route: 048
     Dates: start: 20240617, end: 20240619
  9. VENOFER [Suspect]
     Active Substance: IRON SUCROSE
     Indication: Iron deficiency anaemia
     Route: 042
     Dates: start: 20240620, end: 20240620
  10. VENOFER [Suspect]
     Active Substance: IRON SUCROSE
     Route: 042
     Dates: start: 20240622, end: 20240622
  11. OMNIPAQUE [Suspect]
     Active Substance: IOHEXOL
     Indication: Scan
     Route: 042
     Dates: end: 20240630
  12. OMNIPAQUE [Suspect]
     Active Substance: IOHEXOL
     Route: 042
     Dates: start: 20240614, end: 20240614
  13. OMNIPAQUE [Suspect]
     Active Substance: IOHEXOL
     Route: 042
     Dates: start: 20240625, end: 20240625
  14. OMNIPAQUE [Suspect]
     Active Substance: IOHEXOL
     Route: 042
     Dates: start: 20240618, end: 20240618
  15. OMNIPAQUE [Suspect]
     Active Substance: IOHEXOL
     Route: 042
     Dates: start: 20240621, end: 20240621
  16. ATENOLOL [Suspect]
     Active Substance: ATENOLOL
     Indication: Abdominal pain
     Route: 048
     Dates: start: 20240623, end: 20240703
  17. KETAMINE [Suspect]
     Active Substance: KETAMINE
     Indication: Pain
     Dosage: 20 MG IF NEEDED
     Route: 042
     Dates: start: 20240620, end: 20240702
  18. PANTOPRAZOLE SODIUM [Suspect]
     Active Substance: PANTOPRAZOLE SODIUM
     Indication: Prophylaxis against gastrointestinal ulcer
     Route: 042
     Dates: start: 20240617, end: 20240625
  19. GABAPENTIN [Suspect]
     Active Substance: GABAPENTIN
     Indication: Neuralgia
     Route: 048
     Dates: start: 20240617, end: 20240619
  20. GABAPENTIN [Suspect]
     Active Substance: GABAPENTIN
     Route: 048
     Dates: start: 20240623, end: 20240626
  21. MORPHINE HYDROCHLORIDE [Suspect]
     Active Substance: MORPHINE HYDROCHLORIDE
     Indication: Pain
     Route: 042
     Dates: end: 20240703
  22. MORPHINE HYDROCHLORIDE [Suspect]
     Active Substance: MORPHINE HYDROCHLORIDE
     Route: 042
     Dates: start: 20240617, end: 20240701

REACTIONS (4)
  - Eosinophilia [Recovering/Resolving]
  - Rash morbilliform [Recovering/Resolving]
  - Eczema [Recovering/Resolving]
  - Blister [Recovering/Resolving]

NARRATIVE: CASE EVENT DATE: 20240625
